FAERS Safety Report 5212860-5 (Version None)
Quarter: 2007Q1

REPORT INFORMATION
  Report Type: 
  Country: None (occurrence: None)
  Receive Date: 20070119
  Receipt Date: 20070112
  Transmission Date: 20070707
  Serious: Yes (Other)
  Sender: FDA-Public Use
  Company Number: US-JNJFOC-20070103216

PATIENT
  Age: 27 Year
  Sex: Male

DRUGS (3)
  1. RISPERDAL [Suspect]
     Indication: SCHIZOAFFECTIVE DISORDER
     Route: 048
  2. RISPERDAL CONSTA [Suspect]
     Indication: SCHIZOAFFECTIVE DISORDER
     Route: 030
  3. CELEXA [Interacting]
     Indication: OBSESSIVE-COMPULSIVE DISORDER
     Route: 048

REACTIONS (6)
  - DRUG INTERACTION [None]
  - NERVOUSNESS [None]
  - NO THERAPEUTIC RESPONSE [None]
  - RESTLESSNESS [None]
  - SPEECH DISORDER [None]
  - TARDIVE DYSKINESIA [None]
